FAERS Safety Report 7919515-4 (Version None)
Quarter: 2011Q4

REPORT INFORMATION
  Report Type: 
  Country: None (occurrence: None)
  Receive Date: 20111116
  Receipt Date: 20111116
  Transmission Date: 20120403
  Serious: Yes (Other)
  Sender: FDA-Public Use
  Company Number: None

PATIENT
  Sex: Female

DRUGS (1)
  1. ORENCIA [Suspect]
     Dosage: EVERY 4 WEEK IV
     Route: 042
     Dates: start: 20110414, end: 20111024

REACTIONS (5)
  - COUGH [None]
  - RASH [None]
  - INFUSION RELATED REACTION [None]
  - PRURITUS [None]
  - ERYTHEMA [None]
